FAERS Safety Report 21732105 (Version 1)
Quarter: 2022Q4

REPORT INFORMATION
  Report Type: Spontaneous
  Country: IR (occurrence: IR)
  Receive Date: 20221215
  Receipt Date: 20221215
  Transmission Date: 20230113
  Serious: Yes (Life-Threatening, Hospitalization, Other)
  Sender: FDA-Public Use
  Company Number: None

PATIENT
  Age: 73 Year
  Sex: Female

DRUGS (14)
  1. PREDNISOLONE [Suspect]
     Active Substance: PREDNISOLONE
     Indication: COVID-19
     Dosage: 25 MILLIGRAM; PER DAY; (25-175 MG)
     Route: 065
     Dates: start: 202105
  2. PREDNISOLONE [Suspect]
     Active Substance: PREDNISOLONE
     Dosage: 175 MILLIGRAM; PER DAY; (25-175 MG)
     Route: 065
     Dates: start: 202105
  3. DEXAMETHASONE [Suspect]
     Active Substance: DEXAMETHASONE
     Indication: COVID-19
     Dosage: 4 MILLIGRAM, BID; (4 MG TWICE DAILY FOR TWO WEEKS)
     Route: 065
     Dates: start: 202105, end: 2021
  4. GLYBURIDE [Suspect]
     Active Substance: GLYBURIDE
     Indication: Diabetes mellitus
     Dosage: UNK
     Route: 065
  5. INTERFERON BETA-1A [Suspect]
     Active Substance: INTERFERON BETA-1A
     Indication: COVID-19
     Dosage: UNK; (IN THE FIRST WEEK); PER DAY
     Route: 065
     Dates: start: 202105
  6. INSULIN NOS [Concomitant]
     Active Substance: INSULIN NOS
     Indication: Diabetes mellitus
     Dosage: 8 INTERNATIONAL UNIT; PER DAY
     Route: 065
     Dates: start: 202105, end: 2021
  7. REMDESIVIR [Concomitant]
     Active Substance: REMDESIVIR
     Indication: COVID-19
     Dosage: 200 MILLIGRAM; PER DAY; (DAILY DOSE OF 200-100 MG)
     Route: 065
     Dates: start: 202105
  8. REMDESIVIR [Concomitant]
     Active Substance: REMDESIVIR
     Dosage: 100 MILLIGRAM; PER DAY; (DAILY DOSE OF 200-100 MG)
     Route: 065
     Dates: start: 202105
  9. HEPARIN [Concomitant]
     Active Substance: HEPARIN SODIUM
     Indication: COVID-19
     Dosage: UNK
     Route: 065
     Dates: start: 202105
  10. AMPHOTERICIN B [Concomitant]
     Active Substance: AMPHOTERICIN B
     Indication: Arteriosclerosis
     Dosage: 250 MILLIGRAM/KILOGRAM; PER DAY
     Route: 065
     Dates: start: 202105
  11. AMPHOTERICIN B [Concomitant]
     Active Substance: AMPHOTERICIN B
     Dosage: 150 MILLIGRAM/KILOGRAM, TOTAL; PER TOTAL; PER DAY; SINGLE DOSE
     Route: 065
     Dates: start: 202105, end: 202105
  12. LASIX [Concomitant]
     Active Substance: FUROSEMIDE
     Indication: COVID-19
     Dosage: UNK
     Route: 065
     Dates: start: 202105
  13. CEFTRIAXONE [Concomitant]
     Active Substance: CEFTRIAXONE
     Indication: COVID-19
     Dosage: UNK
     Route: 065
     Dates: start: 202105
  14. METFORMIN HYDROCHLORIDE\SITAGLIPTIN PHOSPHATE [Concomitant]
     Active Substance: METFORMIN HYDROCHLORIDE\SITAGLIPTIN PHOSPHATE
     Indication: Diabetes mellitus
     Dosage: UNK; (DOSE OF 50/1000)
     Route: 065

REACTIONS (7)
  - Conjunctival oedema [Unknown]
  - Exophthalmos [Unknown]
  - Rhinocerebral mucormycosis [Recovered/Resolved]
  - Cellulitis [Unknown]
  - Treatment noncompliance [Unknown]
  - Medication error [Unknown]
  - Off label use [Unknown]

NARRATIVE: CASE EVENT DATE: 20210601
